FAERS Safety Report 21092392 (Version 9)
Quarter: 2023Q1

REPORT INFORMATION
  Report Type: Spontaneous
  Country: AR (occurrence: AR)
  Receive Date: 20220718
  Receipt Date: 20230315
  Transmission Date: 20230417
  Serious: Yes (Hospitalization, Other)
  Sender: FDA-Public Use
  Company Number: AR-TOLMAR, INC.-22AR035663

PATIENT
  Age: 78 Year
  Sex: Male
  Weight: 79 kg

DRUGS (10)
  1. ELIGARD [Suspect]
     Active Substance: LEUPROLIDE ACETATE
     Indication: Prostate cancer metastatic
     Dosage: 22.5 MILLIGRAM, Q 3 WEEK
     Dates: start: 20220425
  2. ENZALUTAMIDE [Suspect]
     Active Substance: ENZALUTAMIDE
     Indication: Prostate cancer metastatic
     Dosage: 40 MILLIGRAM, Q 3 WEEK
     Route: 048
     Dates: start: 20220425, end: 20220627
  3. ENZALUTAMIDE [Suspect]
     Active Substance: ENZALUTAMIDE
     Dosage: 160 MILLIGRAM, QD
     Route: 048
     Dates: start: 20221222, end: 20230117
  4. ENALAPRIL\HYDROCHLOROTHIAZIDE [Concomitant]
     Active Substance: ENALAPRIL\HYDROCHLOROTHIAZIDE
     Indication: Product used for unknown indication
     Dosage: UNK
     Dates: start: 19991201
  5. ATEL [ATENOLOL] [Concomitant]
     Indication: Product used for unknown indication
     Dosage: UNK
     Dates: start: 19991201
  6. ALPRAZOLAM [Concomitant]
     Active Substance: ALPRAZOLAM
     Indication: Product used for unknown indication
     Dosage: UNK
     Dates: start: 19991201
  7. SINLIP [ROSUVASTATIN CALCIUM] [Concomitant]
     Indication: Product used for unknown indication
  8. TAMSULOSIN [Concomitant]
     Active Substance: TAMSULOSIN
     Indication: Product used for unknown indication
     Dosage: UNK
     Dates: start: 20151201
  9. TRUSOPT [Concomitant]
     Active Substance: DORZOLAMIDE HYDROCHLORIDE
     Indication: Product used for unknown indication
     Dosage: UNK
     Dates: start: 19801201
  10. LOUTEN [Concomitant]
     Indication: Product used for unknown indication
     Dosage: UNK
     Dates: start: 19991201

REACTIONS (12)
  - Neutropenia [Recovered/Resolved]
  - COVID-19 pneumonia [Not Recovered/Not Resolved]
  - Acute kidney injury [Recovered/Resolved]
  - Atrial fibrillation [Recovered/Resolved]
  - Tracheobronchitis bacterial [Unknown]
  - Intensive care unit acquired weakness [Recovered/Resolved with Sequelae]
  - Thrombocytopenia [Unknown]
  - Cerebral haemorrhage [Not Recovered/Not Resolved]
  - Mean cell haemoglobin concentration decreased [Unknown]
  - Diarrhoea [Unknown]
  - Anaemia [Unknown]
  - Blood creatinine increased [Unknown]

NARRATIVE: CASE EVENT DATE: 20220527
